FAERS Safety Report 25030292 (Version 1)
Quarter: 2025Q1

REPORT INFORMATION
  Report Type: Spontaneous
  Country: JP (occurrence: JP)
  Receive Date: 20250303
  Receipt Date: 20250303
  Transmission Date: 20250408
  Serious: Yes (Hospitalization, Other)
  Sender: GLAXOSMITHKLINE
  Company Number: JP-GSK-JP2025JPN023784

PATIENT

DRUGS (1)
  1. VALTREX [Suspect]
     Active Substance: VALACYCLOVIR HYDROCHLORIDE
     Indication: Herpes zoster
     Dosage: 3000 MG, QD

REACTIONS (9)
  - Toxic encephalopathy [Unknown]
  - Acute kidney injury [Unknown]
  - Depressed level of consciousness [Recovering/Resolving]
  - Urine output decreased [Unknown]
  - Altered state of consciousness [Unknown]
  - Anuria [Unknown]
  - Renal impairment [Recovering/Resolving]
  - Hypertension [Unknown]
  - Tachycardia [Unknown]
